FAERS Safety Report 20818892 (Version 1)
Quarter: 2022Q2

REPORT INFORMATION
  Report Type: Spontaneous
  Country: DK (occurrence: DK)
  Receive Date: 20220512
  Receipt Date: 20220512
  Transmission Date: 20220721
  Serious: Yes (Other)
  Sender: FDA-Public Use
  Company Number: None

PATIENT
  Age: 35 Year
  Sex: Male
  Weight: 78 kg

DRUGS (3)
  1. DEPO-MEDROL [Suspect]
     Active Substance: METHYLPREDNISOLONE ACETATE
     Indication: Synovial cyst
     Dosage: UNK
     Dates: start: 20191120, end: 20191120
  2. DEPO-MEDROL [Suspect]
     Active Substance: METHYLPREDNISOLONE ACETATE
     Dosage: UNK
     Dates: start: 20200309, end: 20200309
  3. DEPO-MEDROL [Suspect]
     Active Substance: METHYLPREDNISOLONE ACETATE
     Dosage: UNK
     Dates: start: 20210302, end: 20210302

REACTIONS (8)
  - Sexual dysfunction [Unknown]
  - Erectile dysfunction [Not Recovered/Not Resolved]
  - Penile discomfort [Unknown]
  - Genital pain [Recovering/Resolving]
  - Libido decreased [Not Recovered/Not Resolved]
  - Muscle spasms [Unknown]
  - Genital discomfort [Unknown]
  - Off label use [Unknown]

NARRATIVE: CASE EVENT DATE: 20191120
